FAERS Safety Report 5988565-X (Version None)
Quarter: 2008Q4

REPORT INFORMATION
  Report Type: 
  Country: None (occurrence: None)
  Receive Date: 20081210
  Receipt Date: 20080429
  Transmission Date: 20090506
  Serious: No
  Sender: FDA-Public Use
  Company Number: US-BAYER-200812105BCC

PATIENT
  Age: 17 Year
  Sex: Female
  Weight: 59 kg

DRUGS (2)
  1. ALEVE [Suspect]
     Indication: HEADACHE
     Dosage: TOTAL DAILY DOSE: 880 MG  UNIT DOSE: 220 MG
     Route: 048
  2. BIRTH CONTROL PILLS NOS [Concomitant]

REACTIONS (1)
  - NO ADVERSE EVENT [None]
